FAERS Safety Report 4614901-2 (Version None)
Quarter: 2005Q1

REPORT INFORMATION
  Report Type: 
  Country: None (occurrence: None)
  Receive Date: 20050322
  Receipt Date: 20040929
  Transmission Date: 20050727
  Serious: Yes (Life-Threatening, Disabling)
  Sender: FDA-Public Use
  Company Number: CA-MERCK-0409CAN00097

PATIENT
  Age: 51 Year
  Sex: Female

DRUGS (7)
  1. COZAAR [Suspect]
     Route: 048
     Dates: start: 20030916, end: 20030930
  2. VIOXX [Concomitant]
     Route: 048
     Dates: start: 20030916
  3. TOBREX [Concomitant]
     Indication: HORDEOLUM
     Route: 047
  4. TYLENOL W/ CODEINE NO. 3 [Concomitant]
     Route: 065
     Dates: start: 20030916
  5. [THERAPY UNSPECIFIED] [Concomitant]
     Route: 065
     Dates: start: 20030916
  6. AMITRIPTYLINE HYDROCHLORIDE [Concomitant]
     Route: 048
     Dates: start: 20030717
  7. LOSEC (OMEPRAZOLE) [Concomitant]
     Route: 048
     Dates: start: 20030930

REACTIONS (12)
  - ARTHRALGIA [None]
  - BLOOD CREATININE INCREASED [None]
  - CHEST PAIN [None]
  - HAEMATOMA [None]
  - HAEMATURIA [None]
  - HAEMORRHAGE [None]
  - HYPOTHYROIDISM [None]
  - MALAISE [None]
  - MUSCLE SPASMS [None]
  - NECK PAIN [None]
  - PALPITATIONS [None]
  - SPLENIC RUPTURE [None]
